FAERS Safety Report 9403615 (Version 2)
Quarter: 2013Q3

REPORT INFORMATION
  Report Type: Spontaneous
  Country: GB (occurrence: GB)
  Receive Date: 20130717
  Receipt Date: 20130812
  Transmission Date: 20140515
  Serious: Yes (Other)
  Sender: FDA-Public Use
  Company Number: GB-AMGEN-GBRSP2013049064

PATIENT
  Age: 78 Year
  Sex: Female

DRUGS (2)
  1. ARANESP [Suspect]
     Indication: PRODUCT USED FOR UNKNOWN INDICATION
     Dosage: 20 MUG, Q2WK
     Route: 065
  2. IRON                               /00023503/ [Concomitant]

REACTIONS (2)
  - Hernia obstructive [Not Recovered/Not Resolved]
  - Vomiting [Not Recovered/Not Resolved]
